FAERS Safety Report 9999008 (Version 2)
Quarter: 2014Q1

REPORT INFORMATION
  Report Type: Spontaneous
  Country: US (occurrence: None)
  Receive Date: 20140310
  Receipt Date: 20140319
  Transmission Date: 20141002
  Serious: Yes (Other)
  Sender: FDA-Public Use
  Company Number: 2014P1001685

PATIENT
  Age: 52 Year
  Sex: Male
  Weight: 82.56 kg

DRUGS (2)
  1. ACTIMMUNE [Suspect]
     Indication: ACUTE LYMPHOCYTIC LEUKAEMIA
     Route: 058
     Dates: start: 201402, end: 20140214
  2. MULTIVITAMINS [Concomitant]

REACTIONS (5)
  - Off label use [None]
  - Tremor [None]
  - Body temperature increased [None]
  - Feeling hot [None]
  - Device related infection [None]
